FAERS Safety Report 14629287 (Version 1)
Quarter: 2018Q1

REPORT INFORMATION
  Report Type: Spontaneous
  Country: DE (occurrence: DE)
  Receive Date: 20180313
  Receipt Date: 20180313
  Transmission Date: 20180509
  Serious: Yes (Disabling)
  Sender: FDA-Public Use
  Company Number: DE-AMGEN-DEUNI2018031342

PATIENT
  Age: 75 Year
  Sex: Female
  Weight: 66.2 kg

DRUGS (16)
  1. AVASTIN [Suspect]
     Active Substance: BEVACIZUMAB
     Dosage: 940 MG, Q3WK
     Route: 042
     Dates: start: 20151218
  2. AVASTIN [Suspect]
     Active Substance: BEVACIZUMAB
     Indication: BREAST CANCER
     Dosage: 1035 MG, Q3WK
     Route: 042
     Dates: start: 20150612
  3. PACLITAXEL. [Concomitant]
     Active Substance: PACLITAXEL
     Indication: BREAST CANCER
     Dosage: 306 MG, UNK
     Route: 042
  4. MONURIL [Concomitant]
     Active Substance: FOSFOMYCIN SODIUM
     Indication: CYSTITIS
     Dosage: ONCE
     Route: 048
     Dates: start: 20150811, end: 20150811
  5. SPASMEX (TROSPIUM CHLORIDE) [Concomitant]
     Active Substance: TROSPIUM CHLORIDE
     Indication: URINARY INCONTINENCE
     Route: 048
  6. PACLITAXEL. [Concomitant]
     Active Substance: PACLITAXEL
     Dosage: 297 MG, UNK
     Route: 042
  7. PACLITAXEL. [Concomitant]
     Active Substance: PACLITAXEL
     Dosage: 297 MG, UNK
     Route: 042
  8. CALCIVIT D [Concomitant]
     Dosage: 400/600 MG
     Route: 048
  9. CANDECOR COMP [Concomitant]
     Active Substance: CANDESARTAN CILEXETIL\HYDROCHLOROTHIAZIDE
     Dosage: 16/12.5 MGDAYS
     Route: 048
  10. XGEVA [Suspect]
     Active Substance: DENOSUMAB
     Indication: PRODUCT USED FOR UNKNOWN INDICATION
     Route: 065
  11. CANDESARTAN. [Concomitant]
     Active Substance: CANDESARTAN
     Dosage: DAYS
     Route: 048
  12. LETROZOL [Concomitant]
     Active Substance: LETROZOLE
     Dosage: DAYS
     Route: 048
  13. PACLITAXEL. [Concomitant]
     Active Substance: PACLITAXEL
     Dosage: 297 MG, UNK
     Route: 042
     Dates: start: 20150612
  14. PACLITAXEL. [Concomitant]
     Active Substance: PACLITAXEL
     Dosage: 306 MG, UNK
     Route: 042
     Dates: start: 20150612
  15. PACLITAXEL. [Concomitant]
     Active Substance: PACLITAXEL
     Dosage: 306 MG, UNK
     Route: 042
  16. ATORVASTATIN [Concomitant]
     Active Substance: ATORVASTATIN
     Route: 048

REACTIONS (3)
  - Pain [Not Recovered/Not Resolved]
  - Disease progression [Not Recovered/Not Resolved]
  - Polyneuropathy [Not Recovered/Not Resolved]

NARRATIVE: CASE EVENT DATE: 20150901
